FAERS Safety Report 5401995-X (Version None)
Quarter: 2007Q3

REPORT INFORMATION
  Report Type: 
  Country: None (occurrence: None)
  Receive Date: 20070727
  Receipt Date: 20070719
  Transmission Date: 20080115
  Serious: Yes (Life-Threatening)
  Sender: FDA-Public Use
  Company Number: 2007SP014710

PATIENT
  Age: 56 Year
  Sex: Female

DRUGS (1)
  1. BETAMETHASONE SODIUM PHOSPHATE [Suspect]
     Indication: ALLERGY PROPHYLAXIS
     Dosage: 24 MG;QD;IV
     Route: 042
     Dates: start: 20070718, end: 20070718

REACTIONS (3)
  - ANAPHYLACTIC SHOCK [None]
  - FEELING ABNORMAL [None]
  - FLUSHING [None]
